FAERS Safety Report 5600809-2 (Version None)
Quarter: 2008Q1

REPORT INFORMATION
  Report Type: 
  Country: None (occurrence: None)
  Receive Date: 20080123
  Receipt Date: 20080111
  Transmission Date: 20080703
  Serious: Yes (Other)
  Sender: FDA-Public Use
  Company Number: US-PFIZER INC-2008004013

PATIENT
  Sex: Female

DRUGS (1)
  1. CHANTIX [Suspect]

REACTIONS (5)
  - CHROMATURIA [None]
  - FATIGUE [None]
  - FEELING COLD [None]
  - NAUSEA [None]
  - SUICIDAL IDEATION [None]
